FAERS Safety Report 5653896-X (Version None)
Quarter: 2008Q1

REPORT INFORMATION
  Report Type: 
  Country: None (occurrence: None)
  Receive Date: 20080306
  Receipt Date: 20080226
  Transmission Date: 20080703
  Serious: Yes (Other)
  Sender: FDA-Public Use
  Company Number: US-ELI_LILLY_AND_COMPANY-US200711006424

PATIENT
  Age: 63 Year
  Sex: Female
  Weight: 100.23 kg

DRUGS (9)
  1. CYMBALTA [Suspect]
     Indication: PAIN
     Dosage: 60 MG, DAILY (1/D)
     Dates: start: 20071001, end: 20071121
  2. ZOLOFT [Interacting]
     Dosage: 100 MG, UNK
  3. TRIAMTERENE AND HYDROCHLOROTHIAZIDE [Concomitant]
     Dosage: UNK, DAILY (1/D)
  4. OXYCODONE HCL [Concomitant]
     Dosage: UNK, EACH EVENING
  5. ATACAND [Concomitant]
     Dosage: 32 MG, DAILY (1/D)
  6. NORVASC [Concomitant]
     Dosage: 5 MG, DAILY (1/D)
  7. TRAMADOL HCL [Concomitant]
     Dosage: 100 MG, 3/D
  8. GABAPENTIN [Concomitant]
     Dosage: 300 MG, EACH EVENING
  9. TRAZODONE HCL [Concomitant]
     Dosage: 100 MG, EACH EVENING

REACTIONS (10)
  - BLOOD CALCIUM INCREASED [None]
  - BLOOD CHLORIDE DECREASED [None]
  - CHILLS [None]
  - COORDINATION ABNORMAL [None]
  - DRUG INTERACTION [None]
  - FLUSHING [None]
  - HYPERHIDROSIS [None]
  - HYPONATRAEMIA [None]
  - LABILE BLOOD PRESSURE [None]
  - OEDEMA [None]
